FAERS Safety Report 13883895 (Version 1)
Quarter: 2017Q3

REPORT INFORMATION
  Report Type: Spontaneous
  Country: US (occurrence: US)
  Receive Date: 20170818
  Receipt Date: 20170818
  Transmission Date: 20171127
  Serious: No
  Sender: FDA-Public Use
  Company Number: None

PATIENT
  Age: 65 Year
  Sex: Male
  Weight: 76.5 kg

DRUGS (1)
  1. IRBESARTAN. [Suspect]
     Active Substance: IRBESARTAN
     Indication: BLOOD PRESSURE MEASUREMENT
     Dosage: ?          QUANTITY:1 TABLET DAILY ORAQL?
     Route: 048
     Dates: start: 20170801, end: 20170815

REACTIONS (6)
  - Product use complaint [None]
  - Product coating issue [None]
  - Dysgeusia [None]
  - Product substitution issue [None]
  - Product solubility abnormal [None]
  - Product size issue [None]

NARRATIVE: CASE EVENT DATE: 20170802
